FAERS Safety Report 10876946 (Version 5)
Quarter: 2016Q1

REPORT INFORMATION
  Report Type: Report from Study
  Country: US (occurrence: US)
  Receive Date: 20150302
  Receipt Date: 20160129
  Transmission Date: 20160525
  Serious: Yes (Hospitalization, Other)
  Sender: FDA-Public Use
  Company Number: US-AMGEN-USASP2015017387

PATIENT
  Age: 86 Year
  Sex: Female
  Weight: 38.55 kg

DRUGS (3)
  1. ENBREL [Suspect]
     Active Substance: ETANERCEPT
     Indication: PSORIATIC ARTHROPATHY
     Dosage: 50 MG, QWK
     Route: 058
     Dates: start: 20030801
  2. ENBREL [Suspect]
     Active Substance: ETANERCEPT
     Indication: PSORIASIS
  3. METHOTREXATE [Concomitant]
     Active Substance: METHOTREXATE
     Dosage: FIVE 2.5 MILLIGRAM TABLETS ONCE WEEKLY
     Dates: start: 2003

REACTIONS (16)
  - Cholelithiasis [Recovered/Resolved]
  - Chondrolysis [Not Recovered/Not Resolved]
  - Fall [Unknown]
  - Carotid artery occlusion [Recovered/Resolved]
  - Dyspnoea [Not Recovered/Not Resolved]
  - Blood pressure increased [Not Recovered/Not Resolved]
  - Head injury [Recovered/Resolved]
  - Laceration [Recovered/Resolved]
  - Contusion [Not Recovered/Not Resolved]
  - Ear pain [Not Recovered/Not Resolved]
  - Facial bones fracture [Not Recovered/Not Resolved]
  - Obesity [Not Recovered/Not Resolved]
  - Haemorrhage [Recovered/Resolved]
  - Deafness [Not Recovered/Not Resolved]
  - Arthralgia [Not Recovered/Not Resolved]
  - Gait disturbance [Recovered/Resolved]

NARRATIVE: CASE EVENT DATE: 2014
